FAERS Safety Report 7245830-6 (Version None)
Quarter: 2011Q1

REPORT INFORMATION
  Report Type: 
  Country: None (occurrence: None)
  Receive Date: 20110126
  Receipt Date: 20110120
  Transmission Date: 20110831
  Serious: Yes (Death)
  Sender: FDA-Public Use
  Company Number: ES-MERCK-1101ESP00033

PATIENT
  Age: 64 Year
  Sex: Female

DRUGS (12)
  1. FOSAMAX PLUS D [Suspect]
     Route: 048
  2. FENTANYL [Concomitant]
     Route: 065
  3. LEFLUNOMIDE [Concomitant]
     Route: 048
  4. CALCIUM CARBONATE [Concomitant]
     Route: 065
  5. GABAPENTIN [Concomitant]
     Route: 065
  6. FLUOXETINE [Concomitant]
     Route: 048
  7. AMITRIPTYLINE HYDROCHLORIDE [Concomitant]
     Route: 048
  8. DEXAMETHASONE [Suspect]
     Route: 048
  9. STRONTIUM RANELATE [Concomitant]
     Route: 048
  10. LANSOPRAZOLE [Concomitant]
     Route: 065
  11. ACETAMINOPHEN [Concomitant]
     Route: 065
  12. FERROUS SULFATE [Concomitant]
     Route: 065

REACTIONS (4)
  - OSTEONECROSIS OF JAW [None]
  - JUGULAR VEIN THROMBOSIS [None]
  - DRUG INTERACTION [None]
  - ABSCESS JAW [None]
